FAERS Safety Report 9432315 (Version 2)
Quarter: 2013Q3

REPORT INFORMATION
  Report Type: Spontaneous
  Country: US (occurrence: None)
  Receive Date: 20130729
  Receipt Date: 20130816
  Transmission Date: 20140515
  Serious: Yes (Life-Threatening, Hospitalization)
  Sender: FDA-Public Use
  Company Number: ALK-2013-001811

PATIENT
  Age: 41 Year
  Sex: Female
  Weight: 84.8 kg

DRUGS (5)
  1. VIVITROL (VIVITROL_NDA) INJECTION, 380MG [Suspect]
     Indication: DRUG DEPENDENCE
     Route: 030
     Dates: start: 20130611, end: 20130611
  2. GABAPENTIN (GABAPENTIN) [Concomitant]
  3. VALACYCLOVIR HCL (VALACYCLOVIR HYDROCHLORIDE) [Concomitant]
  4. IBUPROFEN (IBUPROFEN) [Concomitant]
  5. PAXIL (PAROXETINE HYDROCHLORIDE) [Concomitant]

REACTIONS (2)
  - Overdose [None]
  - Drug abuse [None]
